FAERS Safety Report 14495393 (Version 1)
Quarter: 2018Q1

REPORT INFORMATION
  Report Type: Spontaneous
  Country: US (occurrence: US)
  Receive Date: 20180206
  Receipt Date: 20180206
  Transmission Date: 20180509
  Serious: No
  Sender: FDA-Public Use
  Company Number: US-SMITH AND NEPHEW, INC-2017SMT00379

PATIENT
  Age: 49 Year
  Sex: Male
  Weight: 109.75 kg

DRUGS (2)
  1. UNSPECIFIED MEDICATIONS [Concomitant]
     Active Substance: UNSPECIFIED INGREDIENT
  2. REGRANEX [Suspect]
     Active Substance: BECAPLERMIN
     Indication: DIABETIC ULCER
     Dosage: UNK UNK, 1X/DAY FOR 12 HOURS ON AND 12 HOURS OFF
     Route: 061
     Dates: start: 201705

REACTIONS (3)
  - Application site discolouration [Not Recovered/Not Resolved]
  - Wound complication [Not Recovered/Not Resolved]
  - Malabsorption from administration site [Not Recovered/Not Resolved]

NARRATIVE: CASE EVENT DATE: 201705
